FAERS Safety Report 23257495 (Version 1)
Quarter: 2023Q4

REPORT INFORMATION
  Report Type: Spontaneous
  Country: US (occurrence: US)
  Receive Date: 20231204
  Receipt Date: 20231204
  Transmission Date: 20240110
  Serious: No
  Sender: FDA-Public Use
  Company Number: US-MYLANLABS-2023M1127098

PATIENT
  Sex: Female

DRUGS (2)
  1. GABAPENTIN [Suspect]
     Active Substance: GABAPENTIN
     Indication: Product used for unknown indication
     Dosage: 3 DOSAGE FORM, QD (100 MG CAP TAKE THREE CAPSULES AT NIGHT)
     Route: 065
     Dates: start: 202305
  2. SERTRALINE [Suspect]
     Active Substance: SERTRALINE HYDROCHLORIDE
     Indication: Emotional disorder
     Dosage: 100 MILLIGRAM, BID
     Route: 065

REACTIONS (1)
  - Off label use [Unknown]
